FAERS Safety Report 11438084 (Version 1)
Quarter: 2015Q3

REPORT INFORMATION
  Report Type: Spontaneous
  Country: HU (occurrence: HU)
  Receive Date: 20150831
  Receipt Date: 20150831
  Transmission Date: 20151125
  Serious: Yes (Other)
  Sender: FDA-Public Use
  Company Number: HU-ROCHE-1627861

PATIENT
  Age: 67 Year
  Sex: Female

DRUGS (3)
  1. AVASTIN [Suspect]
     Active Substance: BEVACIZUMAB
     Indication: CERVIX CARCINOMA
     Route: 042
     Dates: start: 201506
  2. CISPLATIN. [Suspect]
     Active Substance: CISPLATIN
     Indication: CERVIX CARCINOMA
     Route: 042
     Dates: start: 201506, end: 201508
  3. PACLITAXEL. [Suspect]
     Active Substance: PACLITAXEL
     Indication: CERVIX CARCINOMA
     Route: 042
     Dates: start: 201506

REACTIONS (3)
  - Vomiting [Not Recovered/Not Resolved]
  - Hypertension [Not Recovered/Not Resolved]
  - Renal impairment [Recovering/Resolving]

NARRATIVE: CASE EVENT DATE: 201506
